FAERS Safety Report 4730466-9 (Version None)
Quarter: 2005Q3

REPORT INFORMATION
  Report Type: 
  Country: None (occurrence: None)
  Receive Date: 20050801
  Receipt Date: 20050627
  Transmission Date: 20060218
  Serious: Yes (Other)
  Sender: FDA-Public Use
  Company Number: PHEH2005US07208

PATIENT
  Age: 65 Year
  Sex: Male

DRUGS (7)
  1. GLEEVEC [Suspect]
     Indication: CHRONIC MYELOID LEUKAEMIA
     Dosage: 400 MG, QOD ALT WITH 200 MG
     Route: 048
     Dates: start: 20050114, end: 20050513
  2. GLEEVEC [Suspect]
     Dosage: 200 MG, QOD, ALT WITH 400 MG
     Route: 048
     Dates: start: 20050101, end: 20050501
  3. ALDARA [Concomitant]
     Indication: SQUAMOUS CELL CARCINOMA
     Route: 061
     Dates: start: 20050301
  4. TOPROL-XL [Concomitant]
     Indication: HYPERTENSION
     Dosage: 25 MG, BID
     Route: 048
     Dates: start: 20050101
  5. HYDROCHLOROTHIAZIDE [Concomitant]
     Indication: HYPERTENSION
     Dosage: 25 MG, QD
     Route: 048
  6. ALLOPURINOL [Concomitant]
     Route: 048
     Dates: start: 20050101, end: 20050301
  7. CALCIUM GLUCONATE [Concomitant]
     Dosage: UNK, BID
     Route: 048

REACTIONS (6)
  - ASTHENIA [None]
  - HYPERTENSION [None]
  - LEUKOPENIA [None]
  - MALIGNANT MELANOMA IN SITU [None]
  - SCLERAL HAEMORRHAGE [None]
  - THROMBOCYTOPENIA [None]
